FAERS Safety Report 5942215-7 (Version None)
Quarter: 2008Q4

REPORT INFORMATION
  Report Type: 
  Country: None (occurrence: None)
  Receive Date: 20081105
  Receipt Date: 20081024
  Transmission Date: 20090506
  Serious: Yes (Other)
  Sender: FDA-Public Use
  Company Number: FI-ROCHE-593702

PATIENT
  Sex: Female

DRUGS (1)
  1. XELODA [Suspect]
     Indication: BREAST CANCER
     Dosage: DOSAGE: 1000 MG/M2X2
     Route: 048
     Dates: start: 20071101, end: 20080701

REACTIONS (1)
  - DISEASE PROGRESSION [None]
